FAERS Safety Report 12696007 (Version 3)
Quarter: 2017Q1

REPORT INFORMATION
  Report Type: Spontaneous
  Country: US (occurrence: US)
  Receive Date: 20160829
  Receipt Date: 20170227
  Transmission Date: 20170428
  Serious: No
  Sender: FDA-Public Use
  Company Number: US-009507513-1608USA012065

PATIENT
  Age: 25 Year
  Sex: Female
  Weight: 112.2 kg

DRUGS (1)
  1. NEXPLANON [Suspect]
     Active Substance: ETONOGESTREL
     Indication: CONTRACEPTION
     Dosage: 1 DF, UNK
     Route: 023
     Dates: start: 20160715, end: 20160824

REACTIONS (5)
  - Vulvovaginal dryness [Unknown]
  - Vulvovaginal swelling [Recovered/Resolved]
  - Menorrhagia [Unknown]
  - Pelvic pain [Recovered/Resolved]
  - Dysmenorrhoea [Unknown]

NARRATIVE: CASE EVENT DATE: 2016
